FAERS Safety Report 10180741 (Version 1)
Quarter: 2014Q2

REPORT INFORMATION
  Report Type: Spontaneous
  Country: US (occurrence: US)
  Receive Date: 20140519
  Receipt Date: 20140519
  Transmission Date: 20141212
  Serious: No
  Sender: FDA-Public Use
  Company Number: US-AMGEN INC.-USASP2014018278

PATIENT
  Age: 76 Year
  Sex: Female

DRUGS (8)
  1. PROLIA [Suspect]
     Indication: OSTEOPOROSIS POSTMENOPAUSAL
     Dosage: UNK
     Route: 065
     Dates: start: 201204
  2. SYNTHROID [Concomitant]
  3. AMLODIPINE [Concomitant]
  4. ELAVIL                             /00002202/ [Concomitant]
     Indication: NEUROPATHY PERIPHERAL
     Dosage: UNK UNK, QHS
  5. POTASSIUM [Concomitant]
  6. BABY ASPIRIN [Concomitant]
  7. VITAMIN B12                        /00056201/ [Concomitant]
  8. CALCIUM WITH VITAMIN D             /00944201/ [Concomitant]

REACTIONS (7)
  - Dental plaque [Unknown]
  - Pain [Unknown]
  - Gingival pain [Unknown]
  - Oral pain [Unknown]
  - Mass [Unknown]
  - Bone pain [Recovering/Resolving]
  - Pain in extremity [Not Recovered/Not Resolved]
